FAERS Safety Report 24899472 (Version 1)
Quarter: 2025Q1

REPORT INFORMATION
  Report Type: Spontaneous
  Country: PT (occurrence: PT)
  Receive Date: 20250129
  Receipt Date: 20250129
  Transmission Date: 20250409
  Serious: Yes (Other)
  Sender: HIKMA
  Company Number: PT-HIKMA PHARMACEUTICALS-PT-H14001-25-00605

PATIENT
  Age: 5 Year
  Sex: Male

DRUGS (2)
  1. AMOXICILLIN\CLAVULANIC ACID [Suspect]
     Active Substance: AMOXICILLIN\CLAVULANIC ACID
     Indication: Staphylococcal abscess
     Route: 065
  2. FLUCLOXACILLIN [Suspect]
     Active Substance: FLUCLOXACILLIN
     Indication: Staphylococcal abscess
     Route: 065

REACTIONS (1)
  - Erythema nodosum [Unknown]
